FAERS Safety Report 10183727 (Version 1)
Quarter: 2014Q2

REPORT INFORMATION
  Report Type: Spontaneous
  Country: GB (occurrence: GB)
  Receive Date: 20140520
  Receipt Date: 20140520
  Transmission Date: 20141212
  Serious: Yes (Other)
  Sender: FDA-Public Use
  Company Number: GB-TAKEDA-2014TJP006028

PATIENT
  Sex: 0

DRUGS (2)
  1. ZOTON FASTAB [Suspect]
     Indication: PROPHYLAXIS AGAINST GASTROINTESTINAL ULCER
     Dosage: UNK
     Route: 048
  2. ZOTON FASTAB [Suspect]
     Indication: DYSPEPSIA

REACTIONS (1)
  - Peptic ulcer perforation [Unknown]
